FAERS Safety Report 25433175 (Version 1)
Quarter: 2025Q2

REPORT INFORMATION
  Report Type: Spontaneous
  Country: FR (occurrence: FR)
  Receive Date: 20250613
  Receipt Date: 20250613
  Transmission Date: 20250716
  Serious: Yes (Death)
  Sender: PFIZER
  Company Number: None

PATIENT
  Age: 77 Year
  Sex: Female
  Weight: 65 kg

DRUGS (23)
  1. PEMETREXED [Suspect]
     Active Substance: PEMETREXED
     Indication: Lung neoplasm malignant
     Dosage: 800 MG, 1X/DAY
     Route: 042
     Dates: start: 20241023, end: 20241023
  2. PEMETREXED [Suspect]
     Active Substance: PEMETREXED
     Dosage: 787.5 MG, 1X/DAY
     Route: 042
     Dates: start: 20241113, end: 20241113
  3. PEMETREXED [Suspect]
     Active Substance: PEMETREXED
     Dosage: 790 MG, 1X/DAY
     Route: 042
     Dates: start: 20241204, end: 20241204
  4. PEMETREXED [Suspect]
     Active Substance: PEMETREXED
     Dosage: 800 MG, 1X/DAY
     Route: 042
     Dates: start: 20241226, end: 20241226
  5. PEMETREXED [Suspect]
     Active Substance: PEMETREXED
     Dosage: 800 MG, 1X/DAY
     Route: 042
     Dates: start: 20250115, end: 20250115
  6. PEMETREXED [Suspect]
     Active Substance: PEMETREXED
     Dosage: 800 MG, 1X/DAY
     Route: 042
     Dates: start: 20250205, end: 20250205
  7. PEMETREXED [Suspect]
     Active Substance: PEMETREXED
     Dosage: 562.5 MG, 1X/DAY
     Route: 042
     Dates: start: 20250319, end: 20250319
  8. CARBOPLATIN [Suspect]
     Active Substance: CARBOPLATIN
     Indication: Lung neoplasm malignant
     Route: 042
     Dates: start: 20241023, end: 20241023
  9. CARBOPLATIN [Suspect]
     Active Substance: CARBOPLATIN
     Route: 042
     Dates: start: 20241113, end: 20241113
  10. CARBOPLATIN [Suspect]
     Active Substance: CARBOPLATIN
     Route: 042
     Dates: start: 20241204, end: 20241204
  11. CARBOPLATIN [Suspect]
     Active Substance: CARBOPLATIN
     Route: 042
     Dates: start: 20241226, end: 20241226
  12. AMIVANTAMAB [Suspect]
     Active Substance: AMIVANTAMAB
     Indication: Lung neoplasm malignant
     Dosage: 350 MG, 1X/DAY
     Route: 042
     Dates: start: 20241023, end: 20241023
  13. AMIVANTAMAB [Suspect]
     Active Substance: AMIVANTAMAB
     Dosage: 1050 MG, 1X/DAY
     Route: 042
     Dates: start: 20241024, end: 20241024
  14. AMIVANTAMAB [Suspect]
     Active Substance: AMIVANTAMAB
     Dosage: 1400 MG, 1X/DAY
     Route: 042
     Dates: start: 20241030, end: 20241030
  15. AMIVANTAMAB [Suspect]
     Active Substance: AMIVANTAMAB
     Dosage: 1400 MG, 1X/DAY
     Route: 042
     Dates: start: 20241106, end: 20241106
  16. AMIVANTAMAB [Suspect]
     Active Substance: AMIVANTAMAB
     Dosage: 1400 MG, 1X/DAY
     Route: 042
     Dates: start: 20241113, end: 20241113
  17. AMIVANTAMAB [Suspect]
     Active Substance: AMIVANTAMAB
     Dosage: 1750 MG, 1X/DAY
     Route: 042
     Dates: start: 20241204, end: 20241204
  18. AMIVANTAMAB [Suspect]
     Active Substance: AMIVANTAMAB
     Dosage: 1750 MG, 1X/DAY
     Route: 042
     Dates: start: 20241226, end: 20241226
  19. AMIVANTAMAB [Suspect]
     Active Substance: AMIVANTAMAB
     Dosage: 1750 MG, 1X/DAY
     Route: 042
     Dates: start: 20250115, end: 20250115
  20. AMIVANTAMAB [Suspect]
     Active Substance: AMIVANTAMAB
     Dosage: 1750 MG, 1X/DAY
     Route: 042
     Dates: start: 20250205, end: 20250205
  21. AMIVANTAMAB [Suspect]
     Active Substance: AMIVANTAMAB
     Dosage: 1400 MG, 1X/DAY
     Route: 042
     Dates: start: 20250319, end: 20250319
  22. AMIVANTAMAB [Suspect]
     Active Substance: AMIVANTAMAB
     Dosage: 1400 MG, 1X/DAY
     Route: 042
     Dates: start: 20250409, end: 20250409
  23. AMIVANTAMAB [Suspect]
     Active Substance: AMIVANTAMAB
     Dosage: 1400 MG, 1X/DAY
     Route: 042
     Dates: start: 20250430, end: 20250430

REACTIONS (1)
  - Interstitial lung disease [Fatal]

NARRATIVE: CASE EVENT DATE: 20250510
